FAERS Safety Report 19173354 (Version 3)
Quarter: 2021Q2

REPORT INFORMATION
  Report Type: Spontaneous
  Country: US (occurrence: US)
  Receive Date: 20210423
  Receipt Date: 20210628
  Transmission Date: 20210717
  Serious: No
  Sender: FDA-Public Use
  Company Number: US-ORGANON-O2103USA003262

PATIENT
  Age: 43 Year
  Sex: Female

DRUGS (2)
  1. PREGNYL [Suspect]
     Active Substance: CHORIOGONADOTROPIN ALFA
     Indication: HUMAN CHORIONIC GONADOTROPIN DECREASED
     Dosage: UNK
     Route: 058
     Dates: start: 20210323, end: 20210324
  2. STERILE WATER [Suspect]
     Active Substance: WATER
     Dosage: UNK

REACTIONS (3)
  - Drug ineffective [Recovered/Resolved]
  - Menstruation delayed [Unknown]
  - Product quality issue [Unknown]

NARRATIVE: CASE EVENT DATE: 20210323
